FAERS Safety Report 10005775 (Version 1)
Quarter: 2014Q1

REPORT INFORMATION
  Report Type: Spontaneous
  Country: US (occurrence: US)
  Receive Date: 20140313
  Receipt Date: 20140313
  Transmission Date: 20141002
  Serious: No
  Sender: FDA-Public Use
  Company Number: US-BIOGENIDEC-2014BI021451

PATIENT
  Age: 66 Year
  Sex: Female

DRUGS (1)
  1. TECFIDERA [Suspect]
     Indication: MULTIPLE SCLEROSIS
     Dates: start: 20131025, end: 20140101

REACTIONS (5)
  - Reynold^s syndrome [Not Recovered/Not Resolved]
  - Blood potassium increased [Recovered/Resolved]
  - Infusion site mass [Recovered/Resolved]
  - General symptom [Recovered/Resolved]
  - Diarrhoea [Recovered/Resolved]
